FAERS Safety Report 4734449-4 (Version None)
Quarter: 2005Q3

REPORT INFORMATION
  Report Type: 
  Country: None (occurrence: None)
  Receive Date: 20050804
  Receipt Date: 20050727
  Transmission Date: 20060218
  Serious: Yes (Hospitalization)
  Sender: FDA-Public Use
  Company Number: FR-ROCHE-412047

PATIENT
  Age: 54 Year
  Sex: Male

DRUGS (6)
  1. APRANAX [Suspect]
     Indication: MUSCULOSKELETAL PAIN
     Route: 048
     Dates: start: 20040408, end: 20040411
  2. THIOCOLCHICOSIDE [Suspect]
     Indication: MUSCULOSKELETAL PAIN
     Route: 048
     Dates: start: 20040408, end: 20040414
  3. PROPOFOL [Suspect]
     Indication: MUSCULOSKELETAL PAIN
     Route: 048
     Dates: start: 20040408, end: 20040414
  4. MYOLASTAN [Suspect]
     Indication: MUSCULOSKELETAL PAIN
     Route: 048
     Dates: start: 20040408, end: 20040414
  5. AZANTAC [Suspect]
     Route: 048
     Dates: start: 20040408, end: 20040414
  6. DI ANTALVIC [Suspect]
     Indication: MUSCULOSKELETAL PAIN
     Route: 048
     Dates: start: 20040408, end: 20040414

REACTIONS (13)
  - COUGH [None]
  - CYANOSIS [None]
  - DYSPNOEA [None]
  - GENERAL PHYSICAL HEALTH DETERIORATION [None]
  - HAEMODIALYSIS [None]
  - HYPOXIA [None]
  - METABOLIC ACIDOSIS [None]
  - MULTIPLE MYELOMA [None]
  - PLEURAL EFFUSION [None]
  - PNEUMOCOCCAL SEPSIS [None]
  - RENAL FAILURE ACUTE [None]
  - SEPSIS [None]
  - SPINAL COMPRESSION FRACTURE [None]
